FAERS Safety Report 23125818 (Version 1)
Quarter: 2023Q4

REPORT INFORMATION
  Report Type: Spontaneous
  Country: DE (occurrence: DE)
  Receive Date: 20231030
  Receipt Date: 20231030
  Transmission Date: 20240110
  Serious: Yes (Hospitalization, Other)
  Sender: FDA-Public Use
  Company Number: DE-002147023-NVSC2020DE171295

PATIENT
  Age: 65 Year
  Sex: Female
  Weight: 92.5 kg

DRUGS (2)
  1. FULVESTRANT [Suspect]
     Active Substance: FULVESTRANT
     Indication: Breast cancer metastatic
     Dosage: 500 MG, Q4W
     Route: 042
     Dates: start: 20200414
  2. KISQALI [Suspect]
     Active Substance: RIBOCICLIB
     Indication: Breast cancer metastatic
     Dosage: 600 MG, QD (SCHEME 21 DAYS INTAKE, 7 DAYS PAUSE)
     Route: 048
     Dates: start: 20200416, end: 20220724

REACTIONS (13)
  - Dyspnoea exertional [Unknown]
  - Pulmonary embolism [Recovered/Resolved with Sequelae]
  - Hypersensitivity [Recovered/Resolved]
  - Haemorrhoidal haemorrhage [Recovered/Resolved]
  - Endometrial hyperplasia [Recovered/Resolved]
  - Mood swings [Not Recovered/Not Resolved]
  - Pain in extremity [Unknown]
  - SARS-CoV-2 test positive [Recovered/Resolved]
  - COVID-19 [Recovered/Resolved]
  - Erythema [Recovered/Resolved]
  - Diarrhoea [Recovered/Resolved]
  - Nasopharyngitis [Recovered/Resolved]
  - Constipation [Not Recovered/Not Resolved]

NARRATIVE: CASE EVENT DATE: 20200501
